FAERS Safety Report 19750667 (Version 1)
Quarter: 2021Q3

REPORT INFORMATION
  Report Type: Spontaneous
  Country: GR (occurrence: GR)
  Receive Date: 20210826
  Receipt Date: 20210826
  Transmission Date: 20211014
  Serious: Yes (Hospitalization)
  Sender: FDA-Public Use
  Company Number: GR-MYLANLABS-2021M1054816

PATIENT
  Sex: Female
  Weight: 60 kg

DRUGS (27)
  1. CANCIDAS [Suspect]
     Active Substance: CASPOFUNGIN ACETATE
     Indication: PRODUCT USED FOR UNKNOWN INDICATION
     Dosage: UNK
  2. ALDACTONE [Suspect]
     Active Substance: SPIRONOLACTONE
     Indication: HYPERTENSION
     Dosage: UNK
  3. MABTHERA [Suspect]
     Active Substance: RITUXIMAB
     Indication: NON-HODGKIN^S LYMPHOMA
  4. EPOETIN ALFA [Suspect]
     Active Substance: ERYTHROPOIETIN
     Indication: ANAEMIA
     Dosage: UNK
  5. VALTREX [Suspect]
     Active Substance: VALACYCLOVIR HYDROCHLORIDE
     Indication: PRODUCT USED FOR UNKNOWN INDICATION
     Dosage: UNK
  6. CISPLATIN. [Suspect]
     Active Substance: CISPLATIN
     Indication: DIFFUSE LARGE B-CELL LYMPHOMA
     Dosage: UNK
  7. VEPESID [Suspect]
     Active Substance: ETOPOSIDE
     Indication: NON-HODGKIN^S LYMPHOMA
     Dosage: UNK
  8. VINCRISTINE SULFATE. [Suspect]
     Active Substance: VINCRISTINE SULFATE
     Indication: NON-HODGKIN^S LYMPHOMA
  9. CYTARABINE. [Suspect]
     Active Substance: CYTARABINE
     Indication: DIFFUSE LARGE B-CELL LYMPHOMA
  10. PREDNISONE. [Suspect]
     Active Substance: PREDNISONE
     Indication: PRODUCT USED FOR UNKNOWN INDICATION
     Dosage: UNK
  11. CYTARABINE. [Suspect]
     Active Substance: CYTARABINE
     Indication: NON-HODGKIN^S LYMPHOMA
     Dosage: UNK
  12. HYALURONIDASE [Suspect]
     Active Substance: HYALURONIDASE
     Indication: PRODUCT USED FOR UNKNOWN INDICATION
     Dosage: UNK
  13. METHYLPREDNISOLONE. [Suspect]
     Active Substance: METHYLPREDNISOLONE
     Indication: PRODUCT USED FOR UNKNOWN INDICATION
     Dosage: UNK
  14. MABTHERA [Suspect]
     Active Substance: RITUXIMAB
     Indication: DIFFUSE LARGE B-CELL LYMPHOMA
     Dosage: UNK
  15. RITUXIMAB. [Suspect]
     Active Substance: RITUXIMAB
     Indication: NON-HODGKIN^S LYMPHOMA
  16. CYCLOPHOSPHAMIDE. [Suspect]
     Active Substance: CYCLOPHOSPHAMIDE
     Indication: DIFFUSE LARGE B-CELL LYMPHOMA
  17. CISPLATIN. [Suspect]
     Active Substance: CISPLATIN
     Indication: NON-HODGKIN^S LYMPHOMA
  18. RITUXIMAB. [Suspect]
     Active Substance: RITUXIMAB
     Indication: DIFFUSE LARGE B-CELL LYMPHOMA
     Dosage: UNK
  19. CYCLOPHOSPHAMIDE. [Suspect]
     Active Substance: CYCLOPHOSPHAMIDE
     Indication: NON-HODGKIN^S LYMPHOMA
     Dosage: UNK
  20. FILGRASTIM [Suspect]
     Active Substance: FILGRASTIM
     Indication: LEUKOPENIA
     Dosage: UNK
  21. LASIX [Suspect]
     Active Substance: FUROSEMIDE
     Indication: HYPERTENSION
     Dosage: UNK
  22. VEPESID [Suspect]
     Active Substance: ETOPOSIDE
     Indication: DIFFUSE LARGE B-CELL LYMPHOMA
  23. CUBICIN [Suspect]
     Active Substance: DAPTOMYCIN
     Indication: PRODUCT USED FOR UNKNOWN INDICATION
     Dosage: UNK
  24. NORVASC [Suspect]
     Active Substance: AMLODIPINE BESYLATE
     Indication: HYPERTENSION
     Dosage: UNK
  25. DOXORUBICIN HCL [Suspect]
     Active Substance: DOXORUBICIN HYDROCHLORIDE
     Indication: DIFFUSE LARGE B-CELL LYMPHOMA
     Dosage: UNK
  26. DOXORUBICIN HCL [Suspect]
     Active Substance: DOXORUBICIN HYDROCHLORIDE
     Indication: NON-HODGKIN^S LYMPHOMA
  27. VINCRISTINE SULFATE. [Suspect]
     Active Substance: VINCRISTINE SULFATE
     Indication: DIFFUSE LARGE B-CELL LYMPHOMA
     Dosage: UNK

REACTIONS (2)
  - Neoplasm progression [Unknown]
  - Diffuse large B-cell lymphoma refractory [Unknown]
